FAERS Safety Report 9376847 (Version 2)
Quarter: 2013Q3

REPORT INFORMATION
  Report Type: Spontaneous
  Country: US (occurrence: US)
  Receive Date: 20130701
  Receipt Date: 20130723
  Transmission Date: 20140515
  Serious: No
  Sender: FDA-Public Use
  Company Number: US-BIOGENIDEC-2013BI056489

PATIENT
  Sex: Female

DRUGS (1)
  1. AVONEX [Suspect]
     Indication: MULTIPLE SCLEROSIS
     Route: 030
     Dates: end: 20110601

REACTIONS (7)
  - Bile duct obstruction [Recovered/Resolved]
  - Cholecystectomy [Recovered/Resolved]
  - Road traffic accident [Recovered/Resolved]
  - Clavicle fracture [Recovered/Resolved]
  - Periarthritis [Recovered/Resolved]
  - Facial bones fracture [Not Recovered/Not Resolved]
  - Influenza like illness [Recovered/Resolved]
